FAERS Safety Report 5746557-X (Version None)
Quarter: 2008Q2

REPORT INFORMATION
  Report Type: 
  Country: None (occurrence: None)
  Receive Date: 20080520
  Receipt Date: 20080520
  Transmission Date: 20081010
  Serious: Yes (Other)
  Sender: FDA-Public Use
  Company Number: None

PATIENT
  Age: 33 Year
  Sex: Female
  Weight: 82.1011 kg

DRUGS (1)
  1. BUPIVICAINE SPINAL INJ [Suspect]
     Indication: CAESAREAN SECTION
     Dosage: SPINAL ANESTHESIA

REACTIONS (2)
  - ANAESTHETIC COMPLICATION [None]
  - PAIN [None]
